FAERS Safety Report 14046308 (Version 4)
Quarter: 2018Q2

REPORT INFORMATION
  Report Type: Spontaneous
  Country: GB (occurrence: GB)
  Receive Date: 20171005
  Receipt Date: 20180409
  Transmission Date: 20180711
  Serious: Yes (Hospitalization, Other)
  Sender: FDA-Public Use
  Company Number: GB-JNJFOC-20170930740

PATIENT
  Age: 4 Decade
  Sex: Female

DRUGS (2)
  1. STELARA [Suspect]
     Active Substance: USTEKINUMAB
     Indication: CROHN^S DISEASE
     Dosage: SECOND DOSE INITIATED 8 WEEKS LATER FIRST DOSE
     Route: 042
  2. STELARA [Suspect]
     Active Substance: USTEKINUMAB
     Indication: CROHN^S DISEASE
     Route: 042

REACTIONS (7)
  - Cardiac failure [Unknown]
  - Overdose [Unknown]
  - Migraine [Unknown]
  - Left ventricular dysfunction [Unknown]
  - Infusion related reaction [Unknown]
  - Bundle branch block left [Unknown]
  - Hypersensitivity [Unknown]
